FAERS Safety Report 9400187 (Version 1)
Quarter: 2013Q3

REPORT INFORMATION
  Report Type: Spontaneous
  Country: DE (occurrence: DE)
  Receive Date: 20130715
  Receipt Date: 20130715
  Transmission Date: 20140515
  Serious: Yes (Other)
  Sender: FDA-Public Use
  Company Number: DE-PFIZER INC-2013202568

PATIENT
  Age: 70 Year
  Sex: Female

DRUGS (1)
  1. GEMCITABINE HYDROCHLORIDE [Suspect]
     Indication: URETERIC CANCER METASTATIC
     Dosage: 1500 MG, CYCLIC (2X1500 MG)

REACTIONS (11)
  - Peripheral ischaemia [Recovering/Resolving]
  - Extremity necrosis [Recovering/Resolving]
  - Ureteric cancer metastatic [None]
  - Malignant neoplasm progression [None]
  - Haemorrhage [None]
  - Cyanosis [None]
  - Skin ulcer [None]
  - Leukocytosis [None]
  - Anaemia [None]
  - Peripheral arterial occlusive disease [None]
  - Toxicity to various agents [None]
